FAERS Safety Report 19805301 (Version 1)
Quarter: 2021Q3

REPORT INFORMATION
  Report Type: Spontaneous
  Country: FR (occurrence: FR)
  Receive Date: 20210908
  Receipt Date: 20210908
  Transmission Date: 20211014
  Serious: Yes (Hospitalization)
  Sender: FDA-Public Use
  Company Number: FR-MYLANLABS-2021M1058550

PATIENT
  Age: 77 Year
  Sex: Female
  Weight: 100 kg

DRUGS (7)
  1. PREGABALINE [Concomitant]
     Active Substance: PREGABALIN
     Dosage: 200 MILLIGRAM
     Route: 048
  2. FUROSEMIDE. [Concomitant]
     Active Substance: FUROSEMIDE
     Dosage: 60 MILLIGRAM
     Route: 048
  3. TRINITRINE [Concomitant]
     Active Substance: NITROGLYCERIN
     Dosage: 10 MILLIGRAM
     Route: 059
  4. CEFEPIME [Suspect]
     Active Substance: CEFEPIME HYDROCHLORIDE
     Indication: OSTEITIS
     Dosage: 2 GRAM, Q6H, (FROM 30/11/2020 : 250 MG/12H)
     Route: 041
     Dates: start: 20201125, end: 20201210
  5. LEVOFLOXACIN. [Suspect]
     Active Substance: LEVOFLOXACIN
     Indication: OSTEITIS
     Dosage: 1000 MILLIGRAM, QD, (FROM 30/11/2020 : 250 MG/12H)
     Route: 041
     Dates: start: 20201125, end: 20201210
  6. ATORVASTATINE                      /01326101/ [Concomitant]
     Active Substance: ATORVASTATIN
     Dosage: 40 MILLIGRAM
     Route: 048
  7. ATENOLOL. [Concomitant]
     Active Substance: ATENOLOL
     Dosage: 50 MILLIGRAM, QD
     Route: 048

REACTIONS (1)
  - Status epilepticus [Recovered/Resolved]

NARRATIVE: CASE EVENT DATE: 20201130
